FAERS Safety Report 17989711 (Version 1)
Quarter: 2020Q3

REPORT INFORMATION
  Report Type: Spontaneous
  Country: US (occurrence: US)
  Receive Date: 20200707
  Receipt Date: 20200707
  Transmission Date: 20201103
  Serious: Yes (Hospitalization, Disabling, Other)
  Sender: FDA-Public Use
  Company Number: US-NAPPMUNDI-USA-2020-0155815

PATIENT

DRUGS (3)
  1. OXYCONTIN [Suspect]
     Active Substance: OXYCODONE HYDROCHLORIDE
     Indication: PAIN
     Dosage: UNK
     Route: 048
  2. PERCOCET [Suspect]
     Active Substance: ACETAMINOPHEN\OXYCODONE HYDROCHLORIDE
     Indication: PAIN
     Dosage: UNK
     Route: 065
  3. REMICADE [Concomitant]
     Active Substance: INFLIXIMAB
     Indication: PRODUCT USED FOR UNKNOWN INDICATION
     Dosage: UNK
     Route: 065
     Dates: start: 2018

REACTIONS (11)
  - Drug dependence [Unknown]
  - Depression [Unknown]
  - Pneumonia [Unknown]
  - Coma [Unknown]
  - Joint injury [Unknown]
  - Behcet^s syndrome [Unknown]
  - Medical induction of coma [Unknown]
  - Disability [Unknown]
  - Deep vein thrombosis [Unknown]
  - Suicide attempt [Unknown]
  - Illness [Unknown]

NARRATIVE: CASE EVENT DATE: 201208
